FAERS Safety Report 18623277 (Version 1)
Quarter: 2020Q4

REPORT INFORMATION
  Report Type: Report from Study
  Country: GB (occurrence: GB)
  Receive Date: 20201216
  Receipt Date: 20201216
  Transmission Date: 20210114
  Serious: Yes (Hospitalization)
  Sender: FDA-Public Use
  Company Number: GB-ROCHE-2568646

PATIENT
  Age: 53 Year
  Sex: Male
  Weight: 125 kg

DRUGS (50)
  1. DOXORUBICIN [Suspect]
     Active Substance: DOXORUBICIN
     Dosage: CYCLE 2 (DAY 1)?TOTAL VOLUME ADMINISTERED (95 ML) ON 26/MAR/2020, HE WAS GIVEN C3D1 R CHOP
     Route: 042
     Dates: start: 20200227
  2. PREDNISOLONE. [Suspect]
     Active Substance: PREDNISOLONE
     Dosage: CYCLE 1 (DAY 2)
     Route: 048
     Dates: start: 20200207
  3. PREDNISOLONE. [Suspect]
     Active Substance: PREDNISOLONE
     Dosage: CYCLE 2 (DAY 4)
     Route: 048
     Dates: start: 20200301
  4. GLICLAZIDE [Concomitant]
     Active Substance: GLICLAZIDE
     Dates: start: 20200422
  5. PARACETAMOL [Concomitant]
     Active Substance: ACETAMINOPHEN
     Route: 048
     Dates: start: 20200304, end: 20200304
  6. CYCLIZINE [Concomitant]
     Active Substance: CYCLIZINE
     Dates: start: 20200205
  7. BENDAMUSTINE;OBINUTUZUMAB [Concomitant]
  8. CYCLOPHOSPHAMIDE. [Suspect]
     Active Substance: CYCLOPHOSPHAMIDE
     Dosage: CYCLE 2 (DAY 1)?TOTAL VOLUME ADMINISTERED (500 ML) ON 26/MAR/2020, HE WAS GIVEN C3D1 R CHOP
     Route: 042
     Dates: start: 20200227
  9. PREDNISOLONE. [Suspect]
     Active Substance: PREDNISOLONE
     Dosage: CYCLE 1 (DAY 3)
     Route: 048
     Dates: start: 20200208
  10. MORPHINE SULFATE. [Concomitant]
     Active Substance: MORPHINE SULFATE
     Indication: NEPHROLITHIASIS
     Dates: start: 20200506
  11. CHLORPHENAMINE [Concomitant]
     Active Substance: CHLORPHENIRAMINE MALEATE
     Route: 042
     Dates: start: 20200227, end: 20200227
  12. CHLORPHENAMINE [Concomitant]
     Active Substance: CHLORPHENIRAMINE MALEATE
     Route: 042
     Dates: start: 20200311, end: 20200311
  13. CHLORPHENAMINE [Concomitant]
     Active Substance: CHLORPHENIRAMINE MALEATE
     Route: 042
     Dates: start: 20200304, end: 20200304
  14. ALLOPURINOL. [Concomitant]
     Active Substance: ALLOPURINOL
     Dates: start: 20200131
  15. VINCRISTINE [Suspect]
     Active Substance: VINCRISTINE
     Indication: DIFFUSE LARGE B-CELL LYMPHOMA
     Dosage: CYCLE 1 (DAY 1)?TOTAL VOLUME ADMINISTERED (50 ML). ON 24/JUN/2020 AT 12:30 PM, HE RECEIVED MOST RECE
     Route: 042
     Dates: start: 20200206
  16. PREDNISOLONE. [Suspect]
     Active Substance: PREDNISOLONE
     Dosage: CYCLE 1 (DAY 4)
     Route: 048
     Dates: start: 20200209
  17. METFORMIN [Concomitant]
     Active Substance: METFORMIN HYDROCHLORIDE
     Indication: TYPE 2 DIABETES MELLITUS
     Dates: start: 20200214
  18. PARACETAMOL [Concomitant]
     Active Substance: ACETAMINOPHEN
     Route: 048
     Dates: start: 20200227, end: 20200227
  19. RITUXIMAB. [Suspect]
     Active Substance: RITUXIMAB
     Indication: DIFFUSE LARGE B-CELL LYMPHOMA
     Dosage: CYCLE 1. TOTAL VOLUME PRIOR AE (95 ML). MOST RECENT DOSE OF STUDY DRUG PRIOR TO AE: 27/FEB/2020 AT 1
     Route: 042
     Dates: start: 20200206
  20. CYCLOPHOSPHAMIDE. [Suspect]
     Active Substance: CYCLOPHOSPHAMIDE
     Indication: DIFFUSE LARGE B-CELL LYMPHOMA
     Dosage: CYCLE 1 (DAY 1). TOTAL VOLUME ADMINISTERED (589 ML). AT 14:30 HE RECEIVED IV CYCLOPHOSPHAMIDE AT 750
     Route: 042
     Dates: start: 20200206
  21. VINCRISTINE [Suspect]
     Active Substance: VINCRISTINE
     Dosage: CYCLE 2 (DAY 1)?TOTAL VOLUME ADMINISTERED (300 ML) ON 26/MAR/2020, HE WAS GIVEN C3D1 R CHOP
     Route: 042
     Dates: start: 20200227
  22. PREDNISOLONE. [Suspect]
     Active Substance: PREDNISOLONE
     Dosage: CYCLE 1 (DAY 5) ON 26/MAR/2020, HE WAS GIVEN C3D1 R CHOP
     Route: 048
     Dates: start: 20200302
  23. CODEINE [Concomitant]
     Active Substance: CODEINE
     Indication: ARTHRALGIA
     Dates: start: 20200311
  24. CODEINE [Concomitant]
     Active Substance: CODEINE
     Indication: MYALGIA
     Dates: start: 20200306, end: 20200306
  25. LACTOSE [Concomitant]
     Active Substance: LACTOSE
     Dates: start: 20200312
  26. SENNA [Concomitant]
     Active Substance: SENNA LEAF\SENNOSIDES\SENNOSIDES A AND B
     Dates: start: 20200312
  27. PREDNISOLONE. [Suspect]
     Active Substance: PREDNISOLONE
     Indication: DIFFUSE LARGE B-CELL LYMPHOMA
     Dosage: CYCLE 1 (DAY 1)?START DATE OF MOST RECENT DOSE OF STUDY DRUG PRIOR TO AE 02-MAR-2020. ON 28/JUN/2020
     Route: 048
     Dates: start: 20200206
  28. TOCILIZUMAB. [Suspect]
     Active Substance: TOCILIZUMAB
     Indication: DIFFUSE LARGE B-CELL LYMPHOMA
     Dosage: ON 12/MAR/2020 AT 4:45 AM, HE RECEIVED MOST RECENT DOSE OF IV TOCILIZUMAB PRIOR TO AE/SAE ONSET WHIC
     Route: 042
     Dates: start: 20200312
  29. ACICLOVIR [Concomitant]
     Active Substance: ACYCLOVIR
     Dates: start: 20200203
  30. AZITHROMYCIN ANHYDROUS. [Concomitant]
     Active Substance: AZITHROMYCIN ANHYDROUS
     Dates: start: 20200206
  31. GLICLAZIDE [Concomitant]
     Active Substance: GLICLAZIDE
     Dates: start: 20200311, end: 202003
  32. GLICLAZIDE [Concomitant]
     Active Substance: GLICLAZIDE
     Dates: start: 20200206, end: 20200302
  33. ANALGESIA [Concomitant]
     Active Substance: UNSPECIFIED INGREDIENT
     Indication: ARTHRALGIA
     Dates: start: 20200306, end: 20200306
  34. ACICLOVIR [Concomitant]
     Active Substance: ACYCLOVIR
     Dates: start: 20200205
  35. DOMPERIDONE [Concomitant]
     Active Substance: DOMPERIDONE
     Indication: NAUSEA
     Dates: start: 20200205
  36. PARACETAMOL [Concomitant]
     Active Substance: ACETAMINOPHEN
     Indication: ARTHRALGIA
     Dates: start: 20200306, end: 20200306
  37. PARACETAMOL [Concomitant]
     Active Substance: ACETAMINOPHEN
     Route: 048
     Dates: start: 20201104, end: 20201104
  38. ANALGESIA [Concomitant]
     Active Substance: UNSPECIFIED INGREDIENT
     Indication: MYALGIA
  39. MOVICOL [Concomitant]
     Active Substance: POLYETHYLENE GLYCOL 3350\POTASSIUM CHLORIDE\SODIUM BICARBONATE\SODIUM CHLORIDE
     Indication: CONSTIPATION
     Dates: start: 20200506
  40. RO7082859 (CD20/C3 T-CELL BISPECIFIC MAB) [Suspect]
     Active Substance: GLOFITAMAB
     Indication: DIFFUSE LARGE B-CELL LYMPHOMA
     Dosage: DATE OF LAST DOSE PRIOR TO ADVERSE EVENT: 04/MAR/2020 2.5 MG START TIME 11:33 AM AND END TIME 4:20 P
     Route: 042
     Dates: start: 20200304
  41. DOXORUBICIN [Suspect]
     Active Substance: DOXORUBICIN
     Indication: DIFFUSE LARGE B-CELL LYMPHOMA
     Dosage: CYCLE 1 (DAY 1)?TOTAL VOLUME ADMINISTERED (30 ML)?ON 27-FEB-2020, START TIME 1:45 PM MOST RECENT DOS
     Route: 042
     Dates: start: 20200206
  42. PREDNISOLONE. [Suspect]
     Active Substance: PREDNISOLONE
     Dosage: CYCLE 2 (DAY 1)
     Route: 048
     Dates: start: 20200227
  43. PREDNISOLONE. [Suspect]
     Active Substance: PREDNISOLONE
     Dosage: CYCLE 2 (DAY 2)
     Route: 048
     Dates: start: 20200228
  44. PREDNISOLONE. [Suspect]
     Active Substance: PREDNISOLONE
     Dosage: CYCLE 2 (DAY 3)
     Route: 048
     Dates: start: 20200229
  45. GLICLAZIDE [Concomitant]
     Active Substance: GLICLAZIDE
     Indication: HYPERGLYCAEMIA
     Dates: start: 20200304
  46. PARACETAMOL [Concomitant]
     Active Substance: ACETAMINOPHEN
     Indication: MYALGIA
     Route: 048
     Dates: start: 20200311, end: 20200311
  47. OMEPRAZOLE. [Concomitant]
     Active Substance: OMEPRAZOLE
     Dates: start: 20200131
  48. RITUXIMAB. [Suspect]
     Active Substance: RITUXIMAB
     Dosage: CYCLE 2?TOTAL VOLUME ADMINISTERED (500 ML) ON 26/MAR/2020, HE WAS GIVEN C3D1 R CHOP
     Route: 042
     Dates: start: 20200227
  49. PREDNISOLONE. [Suspect]
     Active Substance: PREDNISOLONE
     Dosage: CYCLE 1 (DAY 5)
     Route: 048
     Dates: start: 20200210
  50. MORPHINE SULFATE. [Concomitant]
     Active Substance: MORPHINE SULFATE
     Indication: BONE PAIN
     Dates: start: 20200311

REACTIONS (2)
  - Cytokine release syndrome [Not Recovered/Not Resolved]
  - Cytokine release syndrome [Recovered/Resolved]

NARRATIVE: CASE EVENT DATE: 20200311
